FAERS Safety Report 11430896 (Version 4)
Quarter: 2018Q1

REPORT INFORMATION
  Report Type: Report from Study
  Country: JP (occurrence: JP)
  Receive Date: 20150828
  Receipt Date: 20180108
  Transmission Date: 20180508
  Serious: Yes (Death, Disabling, Other)
  Sender: FDA-Public Use
  Company Number: JP-SA-2015SA117763

PATIENT
  Age: 35 Year
  Sex: Female
  Weight: 43.3 kg

DRUGS (25)
  1. VENILON [Concomitant]
     Active Substance: HUMAN IMMUNOGLOBULIN G
     Indication: INFECTION
     Route: 051
     Dates: start: 20150624, end: 20150629
  2. HEPARIN [Suspect]
     Active Substance: HEPARIN SODIUM
     Route: 065
  3. CHLOR-TRIMETON [Concomitant]
     Active Substance: CHLORPHENIRAMINE MALEATE
     Indication: PREMEDICATION
     Route: 051
     Dates: start: 20150624, end: 20150625
  4. MYCOPHENOLATE MOFETIL. [Concomitant]
     Active Substance: MYCOPHENOLATE MOFETIL
     Indication: IMMUNOSUPPRESSANT DRUG THERAPY
     Dosage: DOSE: 1000-1500 MG
     Route: 048
     Dates: start: 20150624
  5. FUNGUARD [Concomitant]
     Active Substance: MICAFUNGIN SODIUM
     Indication: FUNGAL INFECTION
     Route: 051
     Dates: start: 20150624
  6. DENOSINE [Concomitant]
     Active Substance: GANCICLOVIR
     Indication: ANTIVIRAL PROPHYLAXIS
     Dosage: DOSE: 30-200 MG
     Route: 051
     Dates: start: 20150624, end: 20150724
  7. ANTHROBIN P [Concomitant]
     Active Substance: ANTITHROMBIN III HUMAN
     Indication: DISSEMINATED INTRAVASCULAR COAGULATION
     Dosage: DOSE:1500 UNIT(S)
     Route: 051
     Dates: start: 20150624, end: 20150626
  8. THYMOGLOBULINE [Suspect]
     Active Substance: LAPINE T-LYMPHOCYTE IMMUNE GLOBULIN
     Indication: LUNG TRANSPLANT REJECTION
     Route: 042
     Dates: start: 20150624, end: 20150624
  9. DIPRIVAN [Concomitant]
     Active Substance: PROPOFOL
     Indication: SEDATION
     Route: 051
     Dates: start: 20150624, end: 20150704
  10. PRECEDEX [Concomitant]
     Active Substance: DEXMEDETOMIDINE HYDROCHLORIDE
     Indication: SEDATION
     Route: 051
     Dates: start: 20150624, end: 20150706
  11. NAUZELIN [Concomitant]
     Active Substance: DOMPERIDONE
     Indication: CHRONIC GASTRITIS
     Route: 048
     Dates: start: 20150624, end: 20150718
  12. KENKETU GLOVENIN-I [Concomitant]
     Active Substance: HUMAN IMMUNOGLOBULIN G
     Indication: INFECTION PROPHYLAXIS
     Route: 051
     Dates: start: 20150630, end: 20150701
  13. THYMOGLOBULINE [Suspect]
     Active Substance: LAPINE T-LYMPHOCYTE IMMUNE GLOBULIN
     Indication: LUNG TRANSPLANT REJECTION
     Route: 042
     Dates: start: 20150625, end: 20150625
  14. THYMOGLOBULINE [Suspect]
     Active Substance: LAPINE T-LYMPHOCYTE IMMUNE GLOBULIN
     Indication: LUNG TRANSPLANT REJECTION
     Route: 042
     Dates: start: 20150630, end: 20150703
  15. TACROLIMUS. [Concomitant]
     Active Substance: TACROLIMUS
     Indication: IMMUNOSUPPRESSANT DRUG THERAPY
     Route: 051
     Dates: start: 20150624, end: 20150717
  16. HANP [Concomitant]
     Active Substance: CARPERITIDE
     Indication: CARDIAC FAILURE ACUTE
     Route: 051
     Dates: start: 20150624, end: 20150723
  17. SOL-MELCORT [Concomitant]
     Active Substance: METHYLPREDNISOLONE SODIUM SUCCINATE
     Indication: PREMEDICATION
     Route: 051
     Dates: start: 20150624, end: 20150704
  18. PREDONINE [Concomitant]
     Active Substance: PREDNISOLONE
     Indication: IMMUNOSUPPRESSANT DRUG THERAPY
     Dosage: DOSE: 20-40 MG
     Route: 051
     Dates: start: 20150705
  19. GASTER [Concomitant]
     Active Substance: FAMOTIDINE
     Indication: ULCER
     Route: 051
     Dates: start: 20150624, end: 20150629
  20. SOL-MELCORT [Concomitant]
     Active Substance: METHYLPREDNISOLONE SODIUM SUCCINATE
     Indication: PREMEDICATION
     Route: 051
     Dates: start: 20150624, end: 20150625
  21. SOL-MELCORT [Concomitant]
     Active Substance: METHYLPREDNISOLONE SODIUM SUCCINATE
     Indication: PREMEDICATION
     Route: 051
     Dates: start: 20150630, end: 20150730
  22. VANCOMYCIN [Concomitant]
     Active Substance: VANCOMYCIN
     Indication: INFECTION
     Route: 051
     Dates: start: 20150624, end: 20150629
  23. CHLOR-TRIMETON [Concomitant]
     Active Substance: CHLORPHENIRAMINE MALEATE
     Indication: PREMEDICATION
     Route: 051
     Dates: start: 20150630, end: 20150703
  24. BACTRAMIN [Concomitant]
     Active Substance: SULFAMETHOXAZOLE\TRIMETHOPRIM
     Indication: ANTI-INFECTIVE THERAPY
     Route: 048
     Dates: start: 20150624, end: 20150629
  25. FIRSTCIN [Concomitant]
     Active Substance: CEFOZOPRAN HYDROCHLORIDE
     Indication: INFECTION PROPHYLAXIS
     Route: 051
     Dates: start: 20150624, end: 20150707

REACTIONS (2)
  - Cerebral haemorrhage [Not Recovered/Not Resolved]
  - Wound haemorrhage [Recovered/Resolved]

NARRATIVE: CASE EVENT DATE: 20150629
